FAERS Safety Report 17676930 (Version 3)
Quarter: 2020Q2

REPORT INFORMATION
  Report Type: Spontaneous
  Country: US (occurrence: US)
  Receive Date: 20200416
  Receipt Date: 20200514
  Transmission Date: 20200714
  Serious: No
  Sender: FDA-Public Use
  Company Number: US-JNJFOC-20200416069

PATIENT
  Sex: Male
  Weight: 89.89 kg

DRUGS (1)
  1. MENS ROGAINE EXTRA STRENGTH [Suspect]
     Active Substance: MINOXIDIL
     Indication: ALOPECIA
     Dosage: 1/2 CAPFUL DOSE, ONCE OR TWICE DAILY
     Route: 061
     Dates: start: 202003

REACTIONS (3)
  - Underdose [Unknown]
  - Inappropriate schedule of product administration [Unknown]
  - Alopecia [Recovered/Resolved]
